FAERS Safety Report 13041172 (Version 1)
Quarter: 2016Q4

REPORT INFORMATION
  Report Type: Spontaneous
  Country: PL (occurrence: PL)
  Receive Date: 20161219
  Receipt Date: 20161219
  Transmission Date: 20170207
  Serious: Yes (Hospitalization)
  Sender: FDA-Public Use
  Company Number: PL-UNICHEM LABORATORIES LIMITED-UCM201612-000287

PATIENT
  Age: 5 Year
  Sex: Female

DRUGS (3)
  1. DIVALPROEX SODIUM. [Suspect]
     Active Substance: DIVALPROEX SODIUM
     Indication: EPILEPSY
  2. BENZODIAZEPINE [Suspect]
     Active Substance: BENZODIAZEPINE
  3. TEGRETOL [Concomitant]
     Active Substance: CARBAMAZEPINE

REACTIONS (7)
  - Pancreatitis acute [Unknown]
  - Sinus bradycardia [Unknown]
  - Pericardial effusion [Recovering/Resolving]
  - Thrombocytopenia [Unknown]
  - Drug interaction [Unknown]
  - Alanine aminotransferase increased [Recovered/Resolved]
  - Aspartate aminotransferase increased [Recovered/Resolved]
